FAERS Safety Report 20838561 (Version 1)
Quarter: 2022Q2

REPORT INFORMATION
  Report Type: Spontaneous
  Country: US (occurrence: US)
  Receive Date: 20220517
  Receipt Date: 20220517
  Transmission Date: 20220720
  Serious: Yes (Other)
  Sender: FDA-Public Use
  Company Number: US-PFIZER INC-202200660994

PATIENT
  Age: 70 Year
  Sex: Female

DRUGS (1)
  1. IBRANCE [Suspect]
     Active Substance: PALBOCICLIB
     Dosage: 100 MG, CYCLIC (TAKE ONE BY MOUTH EVERY DAY FOR 21 DAYS AND THEN 7 DAYS OFF)
     Route: 048

REACTIONS (5)
  - Second primary malignancy [Unknown]
  - Brain neoplasm [Unknown]
  - Speech disorder [Unknown]
  - Dysgraphia [Unknown]
  - Feeling abnormal [Unknown]
